FAERS Safety Report 26136999 (Version 1)
Quarter: 2025Q4

REPORT INFORMATION
  Report Type: Spontaneous
  Country: US (occurrence: US)
  Receive Date: 20251209
  Receipt Date: 20251209
  Transmission Date: 20260118
  Serious: Yes (Hospitalization, Other)
  Sender: BRISTOL-MYERS SQUIBB COMPANY
  Company Number: US-BRISTOL-MYERS SQUIBB COMPANY-2025-165331

PATIENT
  Age: 81 Year
  Sex: Female

DRUGS (1)
  1. POMALYST [Suspect]
     Active Substance: POMALIDOMIDE
     Indication: Monoclonal gammopathy
     Dosage: DAILY FOR 21 DAYS, THEN 7 DAYS OFF
     Route: 048

REACTIONS (3)
  - Spinal fracture [Unknown]
  - Fall [Unknown]
  - Off label use [Unknown]
